FAERS Safety Report 14415694 (Version 1)
Quarter: 2018Q1

REPORT INFORMATION
  Report Type: Not Available
  Country: US (occurrence: US)
  Receive Date: 20180122
  Receipt Date: 20180122
  Transmission Date: 20180509
  Serious: No
  Sender: FDA-Public Use
  Company Number: US-NEUROCRINE BIOSCIENCES INC.-2017NBI01630

PATIENT
  Sex: Male

DRUGS (8)
  1. LEVOTHYROXINE. [Concomitant]
     Active Substance: LEVOTHYROXINE
  2. TAMSULOSIN [Concomitant]
     Active Substance: TAMSULOSIN
  3. BUPROPION. [Concomitant]
     Active Substance: BUPROPION
  4. PRAVASTATIN. [Concomitant]
     Active Substance: PRAVASTATIN
  5. CYCLOBENZAPRINE. [Concomitant]
     Active Substance: CYCLOBENZAPRINE
  6. INGREZZA [Suspect]
     Active Substance: VALBENAZINE
     Route: 048
     Dates: start: 20171109
  7. INGREZZA [Suspect]
     Active Substance: VALBENAZINE
     Indication: PRODUCT USED FOR UNKNOWN INDICATION
     Route: 048
     Dates: start: 20171101, end: 20171108
  8. IBUPROFEN. [Concomitant]
     Active Substance: IBUPROFEN

REACTIONS (3)
  - Constipation [Not Recovered/Not Resolved]
  - Drug effect decreased [None]
  - Dyskinesia [Unknown]

NARRATIVE: CASE EVENT DATE: 2017
